FAERS Safety Report 15709191 (Version 1)
Quarter: 2018Q4

REPORT INFORMATION
  Report Type: Spontaneous
  Country: US (occurrence: US)
  Receive Date: 20181211
  Receipt Date: 20181211
  Transmission Date: 20190205
  Serious: No
  Sender: FDA-Public Use
  Company Number: US-APOTEX-2018AP007611

PATIENT
  Sex: Male

DRUGS (2)
  1. NICOTINE. [Suspect]
     Active Substance: NICOTINE
     Indication: PRODUCT USED FOR UNKNOWN INDICATION
     Dosage: 14 MG, UNK
     Route: 065
  2. NICOTINE. [Suspect]
     Active Substance: NICOTINE
     Dosage: 21 MG, UNK
     Route: 065

REACTIONS (3)
  - Withdrawal syndrome [Unknown]
  - Sleep disorder [Unknown]
  - Palpitations [Unknown]
